FAERS Safety Report 5190223-9 (Version None)
Quarter: 2006Q4

REPORT INFORMATION
  Report Type: 
  Country: None (occurrence: None)
  Receive Date: 20061222
  Receipt Date: 20061009
  Transmission Date: 20070319
  Serious: No
  Sender: FDA-Public Use
  Company Number: US-AMGEN-US196225

PATIENT
  Age: 79 Year
  Sex: Female

DRUGS (10)
  1. ARANESP [Suspect]
     Indication: ANAEMIA
     Dates: start: 20060101
  2. PLAQUENIL [Concomitant]
  3. PREDNISONE TAB [Concomitant]
  4. ACTOS [Concomitant]
  5. GLUCOPHAGE [Concomitant]
  6. PLAVIX [Concomitant]
  7. POTASSIUM ACETATE [Concomitant]
  8. OS-CAL [Concomitant]
  9. ALDACTONE [Concomitant]
  10. COLCHICINE [Concomitant]

REACTIONS (2)
  - PAIN [None]
  - THROMBOSIS [None]
